FAERS Safety Report 7691455-8 (Version None)
Quarter: 2011Q3

REPORT INFORMATION
  Report Type: 
  Country: None (occurrence: None)
  Receive Date: 20110818
  Receipt Date: 20110811
  Transmission Date: 20111222
  Serious: Yes (Life-Threatening, Other)
  Sender: FDA-Public Use
  Company Number: PHHY2011BR72405

PATIENT
  Age: 56 Year
  Sex: Female

DRUGS (2)
  1. CLONIDINE HYDROCHLORIDE [Concomitant]
     Indication: HYPERTENSION
     Dosage: 1 TABLET A DAY
  2. EXFORGE HCT [Suspect]
     Indication: HYPERTENSION
     Dosage: VALS 160 MG AND 12.5 MG HYDR (ONCE DAILY IN THE MORNING) AND AMLO 5 MG (ONE TABLET)
     Dates: end: 20110809

REACTIONS (32)
  - EYE DISCHARGE [None]
  - PRODUCTIVE COUGH [None]
  - ABDOMINAL PAIN [None]
  - MALAISE [None]
  - MUSCLE SPASMS [None]
  - DYSGEUSIA [None]
  - ANORECTAL DISCOMFORT [None]
  - EYE PAIN [None]
  - DIARRHOEA [None]
  - LUNG DISORDER [None]
  - BLOOD CHOLESTEROL INCREASED [None]
  - EYE PRURITUS [None]
  - DECREASED APPETITE [None]
  - HEADACHE [None]
  - BLOOD GLUCOSE INCREASED [None]
  - COUGH [None]
  - HAEMOPTYSIS [None]
  - VULVOVAGINAL DISCOMFORT [None]
  - FEELING ABNORMAL [None]
  - DYSPNOEA [None]
  - MASS [None]
  - NERVOUSNESS [None]
  - INSOMNIA [None]
  - HYPERTENSION [None]
  - PRURITUS GENERALISED [None]
  - DRY MOUTH [None]
  - DIZZINESS [None]
  - THROAT TIGHTNESS [None]
  - PARALYSIS [None]
  - DYSENTERY [None]
  - ABDOMINAL DISTENSION [None]
  - FLATULENCE [None]
